FAERS Safety Report 5904573-9 (Version None)
Quarter: 2008Q4

REPORT INFORMATION
  Report Type: 
  Country: None (occurrence: None)
  Receive Date: 20081001
  Receipt Date: 20080919
  Transmission Date: 20090506
  Serious: Yes (Other)
  Sender: FDA-Public Use
  Company Number: IT-ELI_LILLY_AND_COMPANY-IT200809005065

PATIENT
  Age: 44 Year
  Sex: Male

DRUGS (3)
  1. GEMZAR [Suspect]
     Indication: BLADDER CANCER
     Dosage: UNK, UNKNOWN
     Route: 043
     Dates: start: 20080829, end: 20080101
  2. KETOPROFEN [Concomitant]
     Indication: PAIN
     Dosage: UNK, AS NEEDED
     Route: 065
  3. CORTISONE [Concomitant]
     Dosage: UNK, UNKNOWN
     Route: 065

REACTIONS (2)
  - DYSPNOEA [None]
  - TACHYPNOEA [None]
